FAERS Safety Report 4825314-2 (Version None)
Quarter: 2005Q4

REPORT INFORMATION
  Report Type: 
  Country: None (occurrence: None)
  Receive Date: 20051111
  Receipt Date: 20051031
  Transmission Date: 20060501
  Serious: Yes (Hospitalization)
  Sender: FDA-Public Use
  Company Number: US-ABBOTT-05P-163-0316019-00

PATIENT
  Age: 73 Year
  Sex: Female
  Weight: 62.198 kg

DRUGS (4)
  1. HUMIRA [Suspect]
     Indication: RHEUMATOID ARTHRITIS
     Route: 058
     Dates: start: 20050101, end: 20051001
  2. IBUPROFEN [Concomitant]
     Indication: PAIN
     Route: 048
  3. PREDNISONE [Concomitant]
     Indication: RHEUMATOID ARTHRITIS
     Route: 048
  4. PHENOBARBITAL [Concomitant]
     Indication: CONVULSION
     Route: 048

REACTIONS (3)
  - DRY SKIN [None]
  - GALLBLADDER DISORDER [None]
  - RENAL DISORDER [None]
